FAERS Safety Report 20904536 (Version 10)
Quarter: 2022Q3

REPORT INFORMATION
  Report Type: Spontaneous
  Country: US (occurrence: US)
  Receive Date: 20220602
  Receipt Date: 20220822
  Transmission Date: 20221026
  Serious: Yes (Other)
  Sender: FDA-Public Use
  Company Number: US-PFIZER INC-202200789369

PATIENT
  Age: 69 Year
  Sex: Female

DRUGS (3)
  1. PREMARIN [Suspect]
     Active Substance: ESTROGENS, CONJUGATED
     Dosage: UNK, (APPLY A PEA-SIZE AMOUNT TO THE VAGINAL AREA 2-3 TIMES A WEEK)
     Route: 067
  2. ELIQUIS [Suspect]
     Active Substance: APIXABAN
     Dosage: UNK
     Route: 065
  3. MYRBETRIQ [Concomitant]
     Active Substance: MIRABEGRON
     Dosage: UNK

REACTIONS (7)
  - Lung neoplasm malignant [Unknown]
  - Spinal compression fracture [Unknown]
  - Discomfort [Unknown]
  - Chronic obstructive pulmonary disease [Unknown]
  - Emphysema [Unknown]
  - Hypokinesia [Unknown]
  - Off label use [Unknown]
